FAERS Safety Report 7460674-8 (Version None)
Quarter: 2011Q2

REPORT INFORMATION
  Report Type: 
  Country: None (occurrence: None)
  Receive Date: 20110505
  Receipt Date: 20110503
  Transmission Date: 20111010
  Serious: No
  Sender: FDA-Public Use
  Company Number: US-PFIZER INC-2011094659

PATIENT
  Sex: Female
  Weight: 49 kg

DRUGS (9)
  1. PRISTIQ [Suspect]
     Indication: DEPRESSION
  2. CALCIUM [Concomitant]
     Dosage: 600 MG, 3X/DAY
     Route: 048
  3. VITAMIN D [Concomitant]
     Dosage: 5000 MG, 1X/DAY
     Route: 048
  4. FISH OIL [Concomitant]
     Dosage: 1000  UNK
  5. PRISTIQ [Suspect]
     Indication: ANXIETY
     Dosage: 50 MG, 1X/DAY
     Route: 048
     Dates: start: 20100101
  6. CLONAZEPAM [Suspect]
     Dosage: 1 MG, 2X/DAY
     Route: 048
     Dates: start: 20110101
  7. CLONAZEPAM [Suspect]
     Indication: ANXIETY
     Dosage: 1 MG, 1X/DAY
     Route: 048
  8. BENAZEPRIL [Concomitant]
     Indication: HYPERTENSION
     Dosage: 10 MG, 1X/DAY
     Route: 048
  9. FLAXSEED OIL [Concomitant]
     Dosage: 1000  UNK

REACTIONS (6)
  - WRONG TECHNIQUE IN DRUG USAGE PROCESS [None]
  - ANXIETY [None]
  - MALAISE [None]
  - DRUG INEFFECTIVE [None]
  - NERVOUSNESS [None]
  - DEPRESSED MOOD [None]
